FAERS Safety Report 8268213-9 (Version None)
Quarter: 2012Q2

REPORT INFORMATION
  Report Type: 
  Country: None (occurrence: None)
  Receive Date: 20120409
  Receipt Date: 20120327
  Transmission Date: 20120825
  Serious: Yes (Death)
  Sender: FDA-Public Use
  Company Number: AR-ROCHE-1053181

PATIENT
  Sex: Male

DRUGS (4)
  1. FLUOROURACIL [Concomitant]
     Indication: COLON CANCER
  2. OXALIPLATIN [Concomitant]
     Indication: COLON CANCER
  3. LEUCOVORIN CALCIUM [Concomitant]
     Indication: COLON CANCER
  4. AVASTIN [Suspect]
     Indication: COLON CANCER
     Route: 042
     Dates: start: 20120210, end: 20120304

REACTIONS (1)
  - PLEURAL EFFUSION [None]
